FAERS Safety Report 24695218 (Version 1)
Quarter: 2024Q4

REPORT INFORMATION
  Report Type: Spontaneous
  Country: US (occurrence: None)
  Receive Date: 20241203
  Receipt Date: 20241203
  Transmission Date: 20250115
  Serious: Yes (Other)
  Sender: Public
  Company Number: None

PATIENT
  Age: 64 Year
  Sex: Female
  Weight: 62.55 kg

DRUGS (6)
  1. VABYSMO [Suspect]
     Active Substance: FARICIMAB-SVOA
     Indication: Neovascular age-related macular degeneration
     Route: 047
     Dates: start: 20240823
  2. VITAMIN C [Concomitant]
     Active Substance: ASCORBIC ACID
  3. VITAMINS [Concomitant]
     Active Substance: VITAMINS
  4. HERBALS\TURMERIC [Concomitant]
     Active Substance: HERBALS\TURMERIC
  5. TYLENOL [Concomitant]
     Active Substance: ACETAMINOPHEN
  6. FIBER THERAPY (CALCIUM POLYCARBOPHIL) [Concomitant]
     Active Substance: CALCIUM POLYCARBOPHIL

REACTIONS (3)
  - Contusion [None]
  - Mass [None]
  - Angioedema [None]

NARRATIVE: CASE EVENT DATE: 20241118
